FAERS Safety Report 10183076 (Version 1)
Quarter: 2014Q2

REPORT INFORMATION
  Report Type: Spontaneous
  Country: US (occurrence: US)
  Receive Date: 20140520
  Receipt Date: 20140520
  Transmission Date: 20141212
  Serious: No
  Sender: FDA-Public Use
  Company Number: US-BAYER-2014-073420

PATIENT
  Age: 81 Year
  Sex: Female
  Weight: 95.24 kg

DRUGS (1)
  1. ALEVE CAPLET [Suspect]
     Indication: OSTEOARTHRITIS

REACTIONS (1)
  - Intentional product misuse [None]
